FAERS Safety Report 20099254 (Version 1)
Quarter: 2021Q4

REPORT INFORMATION
  Report Type: Spontaneous
  Country: DE (occurrence: DE)
  Receive Date: 20211122
  Receipt Date: 20211122
  Transmission Date: 20220303
  Serious: Yes (Hospitalization, Other)
  Sender: FDA-Public Use
  Company Number: DE-009507513-2111DEU006852

PATIENT
  Sex: Female

DRUGS (1)
  1. KEYTRUDA [Suspect]
     Active Substance: PEMBROLIZUMAB
     Indication: Peritoneal carcinoma metastatic
     Dosage: 200 MILLIGRAM, EVERY 3 WEEKS
     Dates: start: 202001, end: 20200319

REACTIONS (5)
  - Encephalopathy [Recovered/Resolved]
  - Dementia [Recovered/Resolved]
  - Confusional state [Recovered/Resolved]
  - Dementia Alzheimer^s type [Unknown]
  - COVID-19 [Unknown]

NARRATIVE: CASE EVENT DATE: 20200101
